FAERS Safety Report 26071768 (Version 2)
Quarter: 2025Q4

REPORT INFORMATION
  Report Type: Spontaneous
  Country: GB (occurrence: GB)
  Receive Date: 20251120
  Receipt Date: 20251127
  Transmission Date: 20260118
  Serious: Yes (Congenital Anomaly, Other)
  Sender: MYLAN
  Company Number: GB-MHRA-EMIS-1384-9979eb11-6136-484a-8acf-4b68502d2260

PATIENT

DRUGS (24)
  1. CITALOPRAM [Suspect]
     Active Substance: CITALOPRAM
     Indication: Product used for unknown indication
     Dosage: 1 DOSAGE FORM, QD
     Route: 064
  2. CITALOPRAM [Suspect]
     Active Substance: CITALOPRAM
     Dosage: 1 DOSAGE FORM, QD
  3. CITALOPRAM [Suspect]
     Active Substance: CITALOPRAM
     Dosage: 1 DOSAGE FORM, QD
  4. CITALOPRAM [Suspect]
     Active Substance: CITALOPRAM
     Dosage: 1 DOSAGE FORM, QD
     Route: 064
  5. CITALOPRAM [Suspect]
     Active Substance: CITALOPRAM
     Dosage: 1 DOSAGE FORM, QD
     Route: 064
  6. CITALOPRAM [Suspect]
     Active Substance: CITALOPRAM
     Dosage: 1 DOSAGE FORM, QD
  7. CITALOPRAM [Suspect]
     Active Substance: CITALOPRAM
     Dosage: 1 DOSAGE FORM, QD
  8. CITALOPRAM [Suspect]
     Active Substance: CITALOPRAM
     Dosage: 1 DOSAGE FORM, QD
     Route: 064
  9. CITALOPRAM [Suspect]
     Active Substance: CITALOPRAM
     Dosage: UNK
     Route: 064
  10. CITALOPRAM [Suspect]
     Active Substance: CITALOPRAM
     Dosage: UNK
     Route: 064
  11. CITALOPRAM [Suspect]
     Active Substance: CITALOPRAM
     Dosage: UNK
  12. CITALOPRAM [Suspect]
     Active Substance: CITALOPRAM
     Dosage: UNK
  13. CITALOPRAM [Suspect]
     Active Substance: CITALOPRAM
     Dosage: UNK
     Route: 064
  14. CITALOPRAM [Suspect]
     Active Substance: CITALOPRAM
     Dosage: UNK
     Route: 064
  15. CITALOPRAM [Suspect]
     Active Substance: CITALOPRAM
     Dosage: UNK
  16. CITALOPRAM [Suspect]
     Active Substance: CITALOPRAM
     Dosage: UNK
  17. MICONAZOLE [Concomitant]
     Active Substance: MICONAZOLE
     Dosage: 30 GRAM, TID (APPLY THINLY TO AFFECTED AREA THREE TIMES A DAY AND MASSAGE INTO SKIN )
     Dates: start: 20250519
  18. MICONAZOLE [Concomitant]
     Active Substance: MICONAZOLE
     Dosage: 30 GRAM, TID (APPLY THINLY TO AFFECTED AREA THREE TIMES A DAY AND MASSAGE INTO SKIN )
     Dates: start: 20250519
  19. MICONAZOLE [Concomitant]
     Active Substance: MICONAZOLE
     Dosage: 30 GRAM, TID (APPLY THINLY TO AFFECTED AREA THREE TIMES A DAY AND MASSAGE INTO SKIN )
     Route: 064
     Dates: start: 20250519
  20. MICONAZOLE [Concomitant]
     Active Substance: MICONAZOLE
     Dosage: 30 GRAM, TID (APPLY THINLY TO AFFECTED AREA THREE TIMES A DAY AND MASSAGE INTO SKIN )
     Route: 064
     Dates: start: 20250519
  21. MICONAZOLE [Concomitant]
     Active Substance: MICONAZOLE
     Dosage: 30 GRAM, TID (APPLY THINLY TO AFFECTED AREA THREE TIMES A DAY AND MASSAGE INTO SKIN )
     Dates: start: 20250519
  22. MICONAZOLE [Concomitant]
     Active Substance: MICONAZOLE
     Dosage: 30 GRAM, TID (APPLY THINLY TO AFFECTED AREA THREE TIMES A DAY AND MASSAGE INTO SKIN )
     Dates: start: 20250519
  23. MICONAZOLE [Concomitant]
     Active Substance: MICONAZOLE
     Dosage: 30 GRAM, TID (APPLY THINLY TO AFFECTED AREA THREE TIMES A DAY AND MASSAGE INTO SKIN )
     Route: 064
     Dates: start: 20250519
  24. MICONAZOLE [Concomitant]
     Active Substance: MICONAZOLE
     Dosage: 30 GRAM, TID (APPLY THINLY TO AFFECTED AREA THREE TIMES A DAY AND MASSAGE INTO SKIN )
     Route: 064
     Dates: start: 20250519

REACTIONS (3)
  - Heart disease congenital [Unknown]
  - Congenital hypothyroidism [Unknown]
  - Foetal exposure during pregnancy [Unknown]
